FAERS Safety Report 9430465 (Version 4)
Quarter: 2013Q4

REPORT INFORMATION
  Report Type: Spontaneous
  Country: JP (occurrence: JP)
  Receive Date: 20130730
  Receipt Date: 20131231
  Transmission Date: 20140711
  Serious: Yes (Hospitalization, Disabling)
  Sender: FDA-Public Use
  Company Number: JP-GLAXOSMITHKLINE-B0911118A

PATIENT
  Age: 72 Year
  Sex: Male
  Weight: 48 kg

DRUGS (10)
  1. VALTREX [Suspect]
     Indication: VIITH NERVE PARALYSIS
     Dosage: 1000MG THREE TIMES PER DAY
     Route: 048
     Dates: start: 20130720, end: 20130720
  2. NORVASC [Concomitant]
     Route: 048
  3. PRECIPITATED CALCIUM CARBONATE [Concomitant]
     Route: 048
  4. PLAVIX [Concomitant]
     Route: 048
  5. OLMETEC [Concomitant]
     Route: 048
  6. ALLELOCK [Concomitant]
     Route: 048
  7. BAYASPIRIN [Concomitant]
     Route: 048
  8. MUCOSOLVAN [Concomitant]
     Route: 048
  9. ALINAMIN-F [Concomitant]
     Route: 048
  10. VITAMEDIN [Concomitant]
     Route: 048

REACTIONS (7)
  - Encephalopathy [Recovering/Resolving]
  - Toxic encephalopathy [Recovering/Resolving]
  - Dysarthria [Recovering/Resolving]
  - Ataxia [Recovering/Resolving]
  - Nystagmus [Recovering/Resolving]
  - Toxicity to various agents [Unknown]
  - Altered state of consciousness [Recovering/Resolving]
